FAERS Safety Report 6027510-8 (Version None)
Quarter: 2009Q1

REPORT INFORMATION
  Report Type: 
  Country: None (occurrence: None)
  Receive Date: 20090105
  Receipt Date: 20081222
  Transmission Date: 20090719
  Serious: Yes (Death)
  Sender: FDA-Public Use
  Company Number: JP-ROCHE-605411

PATIENT
  Age: 76 Year
  Sex: Male

DRUGS (7)
  1. CAPECITABINE [Suspect]
     Indication: RECTAL CANCER
     Dosage: NOTE: 2 WEEK ADMINISTRATION FOLLOWED BY 1 WEEK REST
     Route: 048
     Dates: start: 20080903, end: 20081217
  2. PYDOXAL [Concomitant]
     Route: 048
  3. LOXONIN [Concomitant]
     Route: 048
  4. MUCOSTA [Concomitant]
     Route: 048
  5. VESICARE [Concomitant]
     Route: 048
  6. FLIVAS [Concomitant]
     Route: 048
  7. FOIPAN [Concomitant]
     Route: 048

REACTIONS (3)
  - DISSEMINATED INTRAVASCULAR COAGULATION [None]
  - PANCYTOPENIA [None]
  - PNEUMONIA ASPIRATION [None]
